FAERS Safety Report 6383793-6 (Version None)
Quarter: 2009Q3

REPORT INFORMATION
  Report Type: 
  Country: None (occurrence: None)
  Receive Date: 20090929
  Receipt Date: 20090929
  Transmission Date: 20100115
  Serious: Yes (Other)
  Sender: FDA-Public Use
  Company Number: None

PATIENT
  Sex: Male
  Weight: 80.7 kg

DRUGS (4)
  1. DAPTOMYCIN [Suspect]
     Indication: ARTHRITIS BACTERIAL
     Dosage: 500 MG DAILY IV BOLUS
     Route: 040
  2. DAPTOMYCIN [Suspect]
     Indication: BACTERAEMIA
     Dosage: 500 MG DAILY IV BOLUS
     Route: 040
  3. DAPTOMYCIN [Suspect]
     Indication: ENDOCARDITIS ENTEROCOCCAL
     Dosage: 500 MG DAILY IV BOLUS
     Route: 040
  4. DAPTOMYCIN [Suspect]
     Indication: ENTEROCOCCAL INFECTION
     Dosage: 500 MG DAILY IV BOLUS
     Route: 040

REACTIONS (2)
  - PNEUMONITIS [None]
  - PULMONARY EOSINOPHILIA [None]
